FAERS Safety Report 15488647 (Version 1)
Quarter: 2018Q4

REPORT INFORMATION
  Report Type: Spontaneous
  Country: ZA (occurrence: ZA)
  Receive Date: 20181011
  Receipt Date: 20181011
  Transmission Date: 20190205
  Serious: Yes (Hospitalization)
  Sender: FDA-Public Use
  Company Number: ZA-PFIZER INC-2018396707

PATIENT
  Sex: Male

DRUGS (5)
  1. DISPRIN CARDIOCARE [Suspect]
     Active Substance: ASPIRIN
     Dosage: 100 MG, UNK
  2. FLORINEF ACETATE [Suspect]
     Active Substance: FLUDROCORTISONE ACETATE
     Dosage: 0.1 MG, UNK
  3. RISPERLET [Suspect]
     Active Substance: RISPERIDONE
     Dosage: 1 MG, UNK
  4. ASPAVOR [Suspect]
     Active Substance: ATORVASTATIN
     Dosage: 20 MG, ONCE OR TWICE A DAY
  5. YELATE [Suspect]
     Active Substance: DULOXETINE HYDROCHLORIDE
     Dosage: 60 MG, UNK

REACTIONS (10)
  - Diarrhoea haemorrhagic [Unknown]
  - Pyrexia [Recovered/Resolved]
  - Viral infection [Unknown]
  - Asthenia [Unknown]
  - Gastrointestinal disorder [Unknown]
  - Hypertension [Unknown]
  - Gait inability [Unknown]
  - Confusional state [Not Recovered/Not Resolved]
  - Intentional product misuse [Unknown]
  - Pallor [Unknown]
